FAERS Safety Report 25553569 (Version 1)
Quarter: 2025Q3

REPORT INFORMATION
  Report Type: Spontaneous
  Country: AU (occurrence: AU)
  Receive Date: 20250715
  Receipt Date: 20250715
  Transmission Date: 20251021
  Serious: Yes (Other)
  Sender: AMGEN
  Company Number: AU-BEH-2025212594

PATIENT

DRUGS (2)
  1. AVACOPAN [Interacting]
     Active Substance: AVACOPAN
     Indication: Product used for unknown indication
     Route: 065
  2. FLUCONAZOLE [Interacting]
     Active Substance: FLUCONAZOLE
     Indication: Product used for unknown indication
     Route: 065

REACTIONS (3)
  - Hepatotoxicity [Unknown]
  - Drug interaction [Unknown]
  - Liver function test abnormal [Unknown]
